FAERS Safety Report 22377232 (Version 1)
Quarter: 2023Q2

REPORT INFORMATION
  Report Type: Report from Study
  Country: CA (occurrence: CA)
  Receive Date: 20230529
  Receipt Date: 20230529
  Transmission Date: 20230722
  Serious: Yes (Death, Other)
  Sender: FDA-Public Use
  Company Number: CA-INCYTE CORPORATION-2023IN001654

PATIENT

DRUGS (3)
  1. TAFASITAMAB [Suspect]
     Active Substance: TAFASITAMAB
     Indication: Diffuse large B-cell lymphoma
     Dosage: 200 MILLIGRAM, CYCLE 2 (4 INFUSIONS)
     Route: 042
     Dates: start: 20230116
  2. TAFASITAMAB [Suspect]
     Active Substance: TAFASITAMAB
     Dosage: 200 MILLIGRAM, AS PER PRODUCT MONOGRAPH
     Route: 042
     Dates: start: 20230116
  3. TAFASITAMAB [Suspect]
     Active Substance: TAFASITAMAB
     Dosage: 1260 MILLIGRAM (CYCLE 2 AS PER PRODUCT MONOGRAPH)
     Route: 042
     Dates: start: 20230116

REACTIONS (2)
  - Death [Fatal]
  - Inappropriate schedule of product administration [Unknown]

NARRATIVE: CASE EVENT DATE: 20230429
